FAERS Safety Report 15325951 (Version 1)
Quarter: 2018Q3

REPORT INFORMATION
  Report Type: Spontaneous
  Country: US (occurrence: US)
  Receive Date: 20180823
  Receipt Date: 20180823
  Transmission Date: 20181010
  Serious: No
  Sender: FDA-Public Use
  Company Number: None

PATIENT
  Age: 29 Year
  Sex: Female
  Weight: 68.31 kg

DRUGS (5)
  1. IBPROFEN [Concomitant]
  2. ARMOUR THYROID [Concomitant]
     Active Substance: THYROID, PORCINE
  3. MIRENA [Suspect]
     Active Substance: LEVONORGESTREL
     Dates: start: 20170525, end: 20180809
  4. COSENTYX [Concomitant]
     Active Substance: SECUKINUMAB
  5. PRENATAL VITAMINS [Concomitant]
     Active Substance: VITAMINS

REACTIONS (4)
  - Migraine [None]
  - Weight increased [None]
  - Tinnitus [None]
  - Libido decreased [None]

NARRATIVE: CASE EVENT DATE: 20180809
